FAERS Safety Report 10400912 (Version 1)
Quarter: 2014Q3

REPORT INFORMATION
  Report Type: Spontaneous
  Country: US (occurrence: US)
  Receive Date: 20140821
  Receipt Date: 20140821
  Transmission Date: 20150326
  Serious: Yes (Hospitalization, Other)
  Sender: FDA-Public Use
  Company Number: US-009507513-1408USA011444

PATIENT
  Sex: Female

DRUGS (1)
  1. NUVARING [Suspect]
     Active Substance: ETHINYL ESTRADIOL\ETONOGESTREL
     Indication: CONTRACEPTION
     Dosage: UNK
     Dates: start: 20080313

REACTIONS (10)
  - Flank pain [Unknown]
  - Obesity [Unknown]
  - Insomnia [Unknown]
  - Deep vein thrombosis [Recovered/Resolved]
  - Bronchial hyperreactivity [Unknown]
  - Viral infection [Unknown]
  - Groin pain [Unknown]
  - Thrombolysis [Unknown]
  - Vena cava filter insertion [Unknown]
  - Vena cava filter removal [Unknown]

NARRATIVE: CASE EVENT DATE: 20080313
